FAERS Safety Report 8138094-2 (Version None)
Quarter: 2012Q1

REPORT INFORMATION
  Report Type: 
  Country: None (occurrence: None)
  Receive Date: 20120215
  Receipt Date: 20120215
  Transmission Date: 20120608
  Serious: Yes (Disabling)
  Sender: FDA-Public Use
  Company Number: None

PATIENT
  Sex: Male
  Weight: 38.555 kg

DRUGS (2)
  1. LITHIUM CARBONATE EXTENDED-REL [Concomitant]
     Indication: BIPOLAR DISORDER
     Dosage: 450 MG
     Route: 048
     Dates: start: 20120130, end: 20120211
  2. RISPERIDONE [Suspect]
     Indication: BIPOLAR DISORDER
     Dosage: 1 MG, 0.5 MG
     Route: 048
     Dates: start: 20120202, end: 20120210

REACTIONS (6)
  - NO THERAPEUTIC RESPONSE [None]
  - MUSCULOSKELETAL STIFFNESS [None]
  - DYSTONIA [None]
  - IMMOBILE [None]
  - JOINT RANGE OF MOTION DECREASED [None]
  - ANTIPSYCHOTIC DRUG LEVEL ABOVE THERAPEUTIC [None]
